FAERS Safety Report 6775181-5 (Version None)
Quarter: 2010Q2

REPORT INFORMATION
  Report Type: 
  Country: None (occurrence: None)
  Receive Date: 20100617
  Receipt Date: 20100607
  Transmission Date: 20101027
  Serious: Yes (Hospitalization)
  Sender: FDA-Public Use
  Company Number: FR-PFIZER INC-2010051464

PATIENT
  Age: 18 Year
  Sex: Female

DRUGS (5)
  1. CEFPODOXIME PROXETIL [Suspect]
     Indication: PHARYNGITIS
     Dosage: 100 MG, DAILY
     Route: 048
     Dates: start: 20100326, end: 20100327
  2. SOLUPRED [Suspect]
     Indication: PHARYNGITIS
     Dosage: 20 MG, ONCE
     Route: 048
     Dates: start: 20100327, end: 20100327
  3. TOPLEXIL ^RHONE-POULENC^ [Suspect]
     Indication: PHARYNGITIS
     Dosage: UNK, 3X/DAY
     Route: 048
     Dates: start: 20100326, end: 20100327
  4. RHINADVIL [Concomitant]
  5. DAFALGAN [Concomitant]

REACTIONS (4)
  - EYELID OEDEMA [None]
  - LEUKOPENIA [None]
  - RASH ERYTHEMATOUS [None]
  - URTICARIA [None]
